FAERS Safety Report 6945460-7 (Version None)
Quarter: 2010Q3

REPORT INFORMATION
  Report Type: 
  Country: None (occurrence: None)
  Receive Date: 20100827
  Receipt Date: 20100817
  Transmission Date: 20110219
  Serious: Yes (Other)
  Sender: FDA-Public Use
  Company Number: US-ROCHE-721898

PATIENT
  Sex: Female

DRUGS (3)
  1. ACCUTANE [Suspect]
     Indication: PRODUCT USED FOR UNKNOWN INDICATION
     Route: 065
     Dates: start: 20060101, end: 20060701
  2. AMNESTEEM [Suspect]
     Indication: ACNE
     Route: 065
     Dates: start: 20060701, end: 20061101
  3. SOTRET [Suspect]
     Indication: ACNE
     Route: 065
     Dates: start: 20061101, end: 20061201

REACTIONS (3)
  - ANXIETY [None]
  - INFLAMMATORY BOWEL DISEASE [None]
  - PAIN [None]
